FAERS Safety Report 7225830-2 (Version None)
Quarter: 2011Q1

REPORT INFORMATION
  Report Type: 
  Country: None (occurrence: None)
  Receive Date: 20110110
  Receipt Date: 20110110
  Transmission Date: 20110831
  Serious: No
  Sender: FDA-Public Use
  Company Number: None

PATIENT
  Age: 55 Year
  Sex: Male
  Weight: 95.2554 kg

DRUGS (1)
  1. LEVAQUIN [Suspect]
     Indication: PROSTATE INFECTION
     Dosage: 1 TABLET 2 X PER DAY PO 2 TABLETS
     Route: 048
     Dates: start: 20100407, end: 20100408

REACTIONS (9)
  - ERYTHEMA [None]
  - URTICARIA [None]
  - INSOMNIA [None]
  - PAIN [None]
  - IMPAIRED WORK ABILITY [None]
  - SWELLING [None]
  - OEDEMA PERIPHERAL [None]
  - IMMOBILE [None]
  - TENDON PAIN [None]
